FAERS Safety Report 11326863 (Version 1)
Quarter: 2015Q3

REPORT INFORMATION
  Report Type: Spontaneous
  Country: US (occurrence: US)
  Receive Date: 20150731
  Receipt Date: 20150731
  Transmission Date: 20151125
  Serious: No
  Sender: FDA-Public Use
  Company Number: US-ROCHE-1410345

PATIENT
  Sex: Female

DRUGS (2)
  1. RIBAVIRIN. [Suspect]
     Active Substance: RIBAVIRIN
     Indication: CHRONIC HEPATITIS C
     Route: 065
     Dates: start: 2011
  2. PEGASYS [Suspect]
     Active Substance: PEGINTERFERON ALFA-2A
     Indication: CHRONIC HEPATITIS C
     Dosage: FOR 1 YEAR
     Route: 030
     Dates: start: 2011

REACTIONS (7)
  - Eating disorder [Unknown]
  - Hypophagia [Unknown]
  - Malaise [Unknown]
  - Incorrect route of drug administration [Unknown]
  - Weight decreased [Unknown]
  - Hepatitis C [Unknown]
  - Asthenia [Unknown]
